FAERS Safety Report 20429768 (Version 1)
Quarter: 2022Q1

REPORT INFORMATION
  Report Type: Spontaneous
  Country: GB (occurrence: None)
  Receive Date: 20220204
  Receipt Date: 20220204
  Transmission Date: 20220424
  Serious: Yes (Life-Threatening)
  Sender: FDA-Public Use
  Company Number: 2022A054376

PATIENT
  Age: 66 Year
  Sex: Male
  Weight: 82 kg

DRUGS (5)
  1. DAPAGLIFLOZIN [Suspect]
     Active Substance: DAPAGLIFLOZIN
     Indication: Cardiac failure
     Dosage: 10, UNKNOWN
     Route: 048
     Dates: start: 20210730, end: 202110
  2. EPLERENONE [Suspect]
     Active Substance: EPLERENONE
     Indication: Cardiac failure
     Dosage: 10
     Route: 048
     Dates: start: 20210730, end: 202110
  3. APIXABAN [Concomitant]
     Active Substance: APIXABAN
     Indication: Cardiac failure
     Dosage: 2.5, TWO TIMES A DAY
     Route: 048
     Dates: start: 20191202
  4. SACUBITRIL\VALSARTAN [Concomitant]
     Active Substance: SACUBITRIL\VALSARTAN
     Indication: Cardiac failure
     Dosage: 24/26MG, TWO TIMES A DAY
     Route: 048
     Dates: start: 20210514
  5. BISOPROLOL [Concomitant]
     Active Substance: BISOPROLOL
     Indication: Cardiac failure
     Dosage: 2.5, TWO TIMES A DAY
     Route: 048
     Dates: start: 201912

REACTIONS (7)
  - Pruritus [Not Recovered/Not Resolved]
  - Rash [Not Recovered/Not Resolved]
  - Erythema [Not Recovered/Not Resolved]
  - Alopecia [Not Recovered/Not Resolved]
  - Oedema [Not Recovered/Not Resolved]
  - Mobility decreased [Not Recovered/Not Resolved]
  - Insomnia [Not Recovered/Not Resolved]

NARRATIVE: CASE EVENT DATE: 20210730
